FAERS Safety Report 4527315-0 (Version None)
Quarter: 2004Q4

REPORT INFORMATION
  Report Type: 
  Country: None (occurrence: None)
  Receive Date: 20041130
  Receipt Date: 20041012
  Transmission Date: 20050328
  Serious: No
  Sender: FDA-Public Use
  Company Number: FABR-10825

PATIENT
  Age: 48 Year
  Sex: Male
  Weight: 82.4 kg

DRUGS (12)
  1. FABRAZYME [Suspect]
     Indication: FABRY'S DISEASE
     Dosage: 105 MG Q2WKS IV
     Route: 042
     Dates: start: 20030318, end: 20040714
  2. FABRAZYME [Suspect]
     Indication: FABRY'S DISEASE
     Dosage: 85  MG Q2WKS IV
     Route: 042
     Dates: start: 20040728
  3. ZYRTEC [Concomitant]
  4. TYLENOL (CAPLET) [Concomitant]
  5. PREDNISONE [Concomitant]
  6. CELLCEPT [Concomitant]
  7. NEORAL [Concomitant]
  8. PLAVIX [Concomitant]
  9. ASPIRIN [Concomitant]
  10. RANITIDINE [Concomitant]
  11. CALCIUM [Concomitant]
  12. LISINOPRIL [Concomitant]

REACTIONS (2)
  - ABDOMINAL PAIN [None]
  - DIARRHOEA [None]
